FAERS Safety Report 7604689-5 (Version None)
Quarter: 2011Q3

REPORT INFORMATION
  Report Type: 
  Country: None (occurrence: None)
  Receive Date: 20110712
  Receipt Date: 20110701
  Transmission Date: 20111222
  Serious: Yes (Hospitalization)
  Sender: FDA-Public Use
  Company Number: BE-CELGENEUS-013-C5013-10050247

PATIENT
  Sex: Male
  Weight: 71 kg

DRUGS (8)
  1. LENALIDOMIDE [Suspect]
     Indication: MULTIPLE MYELOMA
     Dosage: 5 MILLIGRAM
     Route: 048
     Dates: start: 20100427, end: 20100430
  2. LENALIDOMIDE [Suspect]
     Route: 048
  3. VELCADE [Suspect]
     Route: 051
  4. MEDROL [Suspect]
     Indication: MULTIPLE MYELOMA
     Dosage: 32 MILLIGRAM
     Route: 048
     Dates: start: 20100427, end: 20100430
  5. GASTROGRAFIN [Concomitant]
     Indication: CONSTIPATION
     Route: 065
     Dates: start: 20100130
  6. VELCADE [Suspect]
     Indication: MULTIPLE MYELOMA
     Dosage: 1 MILLIGRAM/SQ. METER
     Route: 051
     Dates: start: 20100427, end: 20100430
  7. ASAFLOW [Concomitant]
     Dosage: 80 MILLIGRAM
     Route: 048
  8. MEDROL [Suspect]
     Route: 048

REACTIONS (1)
  - FAECALOMA [None]
